FAERS Safety Report 19465169 (Version 1)
Quarter: 2021Q2

REPORT INFORMATION
  Report Type: Spontaneous
  Country: TR (occurrence: TR)
  Receive Date: 20210627
  Receipt Date: 20210627
  Transmission Date: 20210717
  Serious: Yes (Hospitalization, Other)
  Sender: FDA-Public Use
  Company Number: TR-UCBSA-2021029194

PATIENT
  Age: 5 Year
  Sex: Male

DRUGS (9)
  1. CEFTRIAXONE. [Concomitant]
     Active Substance: CEFTRIAXONE
     Indication: PRODUCT USED FOR UNKNOWN INDICATION
     Dosage: UNKNOWN DOSE
  2. BACLOFEN. [Concomitant]
     Active Substance: BACLOFEN
     Indication: DYSTONIA
     Dosage: 1 MG/KG/DAY, IN 3 DIVIDED DOSES
     Route: 048
  3. CHLORAL HYDRATE [Concomitant]
     Active Substance: CHLORAL HYDRATE
     Indication: DYSTONIA
     Dosage: 50 MG/KG, 4 DOSES PER DAY
     Route: 048
  4. TRIHEXYPHENIDYL [Concomitant]
     Active Substance: TRIHEXYPHENIDYL
     Indication: PRODUCT USED FOR UNKNOWN INDICATION
     Dosage: UNKNOWN DOSE
  5. LEVETIRACETAM. [Suspect]
     Active Substance: LEVETIRACETAM
     Indication: SEIZURE
     Dosage: UNKNOWN DOSE
  6. VALPROATE [Suspect]
     Active Substance: VALPROIC ACID
     Indication: SEIZURE
     Dosage: UNKNOWN DOSE
  7. CARBAMAZEPINE. [Suspect]
     Active Substance: CARBAMAZEPINE
     Indication: SEIZURE
     Dosage: UNKNOWN DOSE
  8. MIDAZOLAM. [Concomitant]
     Active Substance: MIDAZOLAM
     Indication: DYSTONIA
     Dosage: 50 MG/KG/H
     Route: 042
  9. HALOPERIDOL. [Concomitant]
     Active Substance: HALOPERIDOL
     Indication: DYSTONIA
     Dosage: 0.05 MG/KG/DAY, IN 3 DIVIDED DOSES
     Route: 048

REACTIONS (3)
  - Multiple-drug resistance [Unknown]
  - Dystonia [Unknown]
  - Rhabdomyolysis [Unknown]
